FAERS Safety Report 10672321 (Version 3)
Quarter: 2015Q1

REPORT INFORMATION
  Report Type: Spontaneous
  Country: US (occurrence: US)
  Receive Date: 20141223
  Receipt Date: 20150211
  Transmission Date: 20150720
  Serious: Yes (Other)
  Sender: FDA-Public Use
  Company Number: US-GLAXOSMITHKLINE-A1089096A

PATIENT

DRUGS (1)
  1. LAMICTAL [Suspect]
     Active Substance: LAMOTRIGINE
     Indication: BIPOLAR DISORDER
     Dosage: 200 MG, UNKNOWN DOSING
     Route: 065
     Dates: start: 1999

REACTIONS (6)
  - Therapeutic response unexpected [Unknown]
  - Breast cancer [Unknown]
  - Memory impairment [Unknown]
  - Malaise [Unknown]
  - Disability [Unknown]
  - Ill-defined disorder [Unknown]

NARRATIVE: CASE EVENT DATE: 201403
